FAERS Safety Report 21530148 (Version 3)
Quarter: 2022Q4

REPORT INFORMATION
  Report Type: Spontaneous
  Country: JP (occurrence: JP)
  Receive Date: 20221031
  Receipt Date: 20221130
  Transmission Date: 20230112
  Serious: Yes (Death)
  Sender: FDA-Public Use
  Company Number: JP-MSD-2210JPN003945J

PATIENT
  Age: 87 Year
  Sex: Female

DRUGS (7)
  1. LAGEVRIO [Suspect]
     Active Substance: MOLNUPIRAVIR
     Indication: COVID-19 treatment
     Dosage: 800 MILLIGRAM, BID
     Route: 048
     Dates: start: 20220905, end: 20220906
  2. AMINO ACIDS\DEXTROSE\ELECTROLYTES NOS\VITAMINS [Concomitant]
     Active Substance: AMINO ACIDS\DEXTROSE\ELECTROLYTES NOS\VITAMINS
     Dosage: 500 MILLILITER, QD
     Route: 065
     Dates: start: 20220815, end: 20220906
  3. PRIMPERAN [Concomitant]
     Active Substance: METOCLOPRAMIDE HYDROCHLORIDE
     Dosage: 10 MILLIGRAM, QD
     Route: 065
     Dates: start: 20220815, end: 20220906
  4. CALCIUM CHLORIDE\POTASSIUM CHLORIDE\SODIUM CHLORIDE\SODIUM LACTATE [Concomitant]
     Active Substance: CALCIUM CHLORIDE\POTASSIUM CHLORIDE\SODIUM CHLORIDE\SODIUM LACTATE
     Dosage: 250 MILLILITER, QD
     Route: 065
     Dates: start: 20220318, end: 20220906
  5. PYRIDOXAL [Concomitant]
     Active Substance: PYRIDOXAL
     Dosage: 10 MILLIGRAM, QD
     Route: 065
     Dates: start: 20220815, end: 20220906
  6. PLEVITA S [Concomitant]
     Dosage: UNK, QD
     Route: 065
     Dates: start: 20220815, end: 20220906
  7. DEXTROSE\POTASSIUM CHLORIDE\SODIUM CHLORIDE\SODIUM LACTATE [Concomitant]
     Active Substance: DEXTROSE\POTASSIUM CHLORIDE\SODIUM CHLORIDE\SODIUM LACTATE
     Dosage: 500 MILLILITER, QD
     Route: 065
     Dates: start: 20220318, end: 20220906

REACTIONS (1)
  - COVID-19 [Fatal]

NARRATIVE: CASE EVENT DATE: 20220907
